FAERS Safety Report 5675050-8 (Version None)
Quarter: 2008Q2

REPORT INFORMATION
  Report Type: 
  Country: None (occurrence: None)
  Receive Date: 20080303
  Receipt Date: 20071203
  Transmission Date: 20081010
  Serious: Yes (Other)
  Sender: FDA-Public Use
  Company Number: RB-8681-2007

PATIENT
  Sex: Female
  Weight: 2.7216 kg

DRUGS (3)
  1. SUBOXONE [Suspect]
     Indication: DRUG DEPENDENCE
     Dosage: 4 MG TRANSPLACENTAL ; 4 MG BID TRANSPLACENTAL
     Route: 064
     Dates: start: 20070401, end: 20070807
  2. SUBOXONE [Suspect]
     Indication: DRUG DEPENDENCE
     Dosage: 4 MG TRANSPLACENTAL ; 4 MG BID TRANSPLACENTAL
     Route: 064
     Dates: start: 20070808, end: 20071103
  3. ZANTAC [Concomitant]

REACTIONS (5)
  - CRYING [None]
  - DIARRHOEA NEONATAL [None]
  - DRUG WITHDRAWAL SYNDROME NEONATAL [None]
  - FEEDING DISORDER NEONATAL [None]
  - TREMOR NEONATAL [None]
